FAERS Safety Report 6657368-5 (Version None)
Quarter: 2010Q1

REPORT INFORMATION
  Report Type: 
  Country: None (occurrence: None)
  Receive Date: 20100330
  Receipt Date: 20100325
  Transmission Date: 20100710
  Serious: Yes (Hospitalization)
  Sender: FDA-Public Use
  Company Number: KR-SANOFI-AVENTIS-2010SA017385

PATIENT
  Age: 28 Year
  Sex: Female

DRUGS (3)
  1. LEFLUNOMIDE [Suspect]
     Route: 048
  2. LEFLUNOMIDE [Suspect]
     Route: 048
  3. GANCICLOVIR [Concomitant]

REACTIONS (1)
  - HEPATIC FUNCTION ABNORMAL [None]
